FAERS Safety Report 4781360-9 (Version None)
Quarter: 2005Q3

REPORT INFORMATION
  Report Type: 
  Country: None (occurrence: None)
  Receive Date: 20050914
  Receipt Date: 20050112
  Transmission Date: 20060218
  Serious: Yes (Death, Other)
  Sender: FDA-Public Use
  Company Number: 163-20785-05010251

PATIENT
  Age: 66 Year
  Sex: Male
  Weight: 67.3138 kg

DRUGS (9)
  1. THALOMID [Suspect]
     Indication: MESOTHELIOMA
     Dosage: SEE IMAGE
     Route: 048
     Dates: end: 20040117
  2. THALOMID [Suspect]
     Indication: MESOTHELIOMA
     Dosage: SEE IMAGE
     Route: 048
     Dates: start: 20040118, end: 20040118
  3. THALOMID [Suspect]
     Indication: MESOTHELIOMA
     Dosage: SEE IMAGE
     Route: 048
     Dates: start: 20041223
  4. VITAMIN B6 [Concomitant]
  5. MIRALAX [Concomitant]
  6. GLYBURIDE [Concomitant]
  7. OXYCONTIN [Concomitant]
  8. ROXICET [Concomitant]
  9. OXYCODONE HCL [Concomitant]

REACTIONS (2)
  - DEATH [None]
  - DEEP VEIN THROMBOSIS [None]
